FAERS Safety Report 12885219 (Version 2)
Quarter: 2016Q4

REPORT INFORMATION
  Report Type: Spontaneous
  Country: US (occurrence: US)
  Receive Date: 20161026
  Receipt Date: 20161208
  Transmission Date: 20170207
  Serious: Yes (Death, Other)
  Sender: FDA-Public Use
  Company Number: US-PFIZER INC-2016496812

PATIENT
  Age: 79 Year
  Sex: Male
  Weight: 61.69 kg

DRUGS (1)
  1. REVATIO [Suspect]
     Active Substance: SILDENAFIL CITRATE
     Indication: PULMONARY ARTERIAL HYPERTENSION
     Dosage: 20 MG, 3X/DAY
     Route: 048
     Dates: start: 20091007, end: 2016

REACTIONS (5)
  - Encephalopathy [Fatal]
  - Hepatic cirrhosis [Fatal]
  - Biliary cirrhosis [Fatal]
  - Cardio-respiratory arrest [Fatal]
  - Loss of consciousness [Unknown]
